FAERS Safety Report 23293904 (Version 1)
Quarter: 2023Q4

REPORT INFORMATION
  Report Type: Spontaneous
  Country: JP (occurrence: JP)
  Receive Date: 20231213
  Receipt Date: 20231213
  Transmission Date: 20240109
  Serious: Yes (Hospitalization)
  Sender: FDA-Public Use
  Company Number: JP-Eisai-202304693_HAL_P_1

PATIENT
  Age: 57 Year
  Sex: Female

DRUGS (3)
  1. HALAVEN [Suspect]
     Active Substance: ERIBULIN MESYLATE
     Indication: Breast cancer
     Dosage: DOSE AND FREQUENCY UNKNOWN
     Route: 042
  2. HALAVEN [Suspect]
     Active Substance: ERIBULIN MESYLATE
     Indication: Metastases to stomach
  3. HALAVEN [Suspect]
     Active Substance: ERIBULIN MESYLATE
     Indication: Metastases to liver

REACTIONS (2)
  - Febrile neutropenia [Recovered/Resolved]
  - Hepatic function abnormal [Recovering/Resolving]
